FAERS Safety Report 5384862-X (Version None)
Quarter: 2007Q3

REPORT INFORMATION
  Report Type: 
  Country: None (occurrence: None)
  Receive Date: 20070706
  Receipt Date: 20070418
  Transmission Date: 20080115
  Serious: No
  Sender: FDA-Public Use
  Company Number: PHEH2007US05846

PATIENT
  Age: 72 Year
  Sex: Female

DRUGS (2)
  1. TEKTURNA [Suspect]
     Dosage: 150 MG;QD; 300 MG;QD
     Dates: start: 20070412
  2. TEKTURNA [Suspect]
     Dosage: 150 MG;QD; 300 MG;QD
     Dates: start: 20070416

REACTIONS (1)
  - BLOOD PRESSURE INCREASED [None]
